FAERS Safety Report 9551433 (Version 1)
Quarter: 2013Q3

REPORT INFORMATION
  Report Type: Spontaneous
  Country: US (occurrence: None)
  Receive Date: 20130724
  Receipt Date: 20130724
  Transmission Date: 20140515
  Serious: Yes (Other)
  Sender: FDA-Public Use
  Company Number: PHEH2012US011320

PATIENT
  Age: 89 Year
  Sex: Male
  Weight: 65.8 kg

DRUGS (18)
  1. GLEEVEC (IMATINIB) UNKNOWN [Suspect]
     Indication: CHRONIC MYELOID LEUKAEMIA
     Route: 048
     Dates: start: 201110, end: 20120718
  2. VYTORIN (EZETIMIBE, SIMVASTATIN) [Concomitant]
  3. PRILOSEC [Concomitant]
  4. DIOVAN HCT (HYDROCHLOROTHIAZIDE, VALSARTAN) [Concomitant]
  5. ASPRIN (ACETYLSALICYLIC ACID) [Concomitant]
  6. FISH OIL (FISH OIL) [Concomitant]
  7. LIBRAX CHLORDIAZEPOXIDE, CLIDINIUM BROMIDE) [Concomitant]
  8. IMODIUM (LOPERAMIDE HYDROCHLORIDE) [Concomitant]
  9. PEPTO-BISMOL (BISMOUTH SUBSALICYLATE) [Concomitant]
  10. TOPROL XL (METOPROLOL SUCCINATE) (100 MILLIGRAM) (METOPROLOL SUCCINATE) [Concomitant]
  11. CARTIA  (ACETYLSALICYLIC ACID) [Concomitant]
  12. DIOVAN (VALSARTAN) [Concomitant]
  13. TRICOR (FENOFIBRATE) [Concomitant]
  14. ZOCOR (SIMVASTATIN) [Concomitant]
  15. ZETIA  (EZETIMIBE) [Concomitant]
  16. LASIX (FUROSEMIDE) [Concomitant]
  17. BENEDRYL (AMMONIUM CHLORIDE, DIPHENHYDRAMINE HYDROCHLORIDE, MENTHOL, SODIUM CITRATE) [Concomitant]
  18. XANAX (ALPRAZOLAM) [Concomitant]

REACTIONS (20)
  - Renal failure [None]
  - Bone marrow failure [None]
  - Blood pressure decreased [None]
  - Nausea [None]
  - Acute prerenal failure [None]
  - Vomiting [None]
  - Diarrhoea [None]
  - Dehydration [None]
  - Fatigue [None]
  - Ageusia [None]
  - Lip dry [None]
  - Gastrointestinal disorder [None]
  - Asthenia [None]
  - Decreased appetite [None]
  - Weight decreased [None]
  - Chills [None]
  - Hyperhidrosis [None]
  - Abdominal pain [None]
  - Periorbital oedema [None]
  - Blood pressure systolic increased [None]
